FAERS Safety Report 25846814 (Version 1)
Quarter: 2025Q3

REPORT INFORMATION
  Report Type: Report from Study
  Country: EU (occurrence: EU)
  Receive Date: 20250925
  Receipt Date: 20250925
  Transmission Date: 20251021
  Serious: Yes (Death, Hospitalization)
  Sender: UCB
  Company Number: EU-UCBSA-2025059205

PATIENT
  Age: 71 Year
  Sex: Female

DRUGS (1)
  1. CERTOLIZUMAB PEGOL [Suspect]
     Active Substance: CERTOLIZUMAB PEGOL
     Indication: Rheumatoid arthritis
     Dosage: 200 MILLIGRAM, EV 2 WEEKS(QOW)
     Dates: start: 20231212, end: 20250528

REACTIONS (3)
  - Septic shock [Fatal]
  - Hyperkeratosis [Fatal]
  - Skin infection [Fatal]

NARRATIVE: CASE EVENT DATE: 20250705
